FAERS Safety Report 8971144 (Version 1)
Quarter: 2012Q4

REPORT INFORMATION
  Report Type: 
  Country: BR (occurrence: BR)
  Receive Date: 20121218
  Receipt Date: 20121218
  Transmission Date: 20130627
  Serious: Yes (Other)
  Sender: FDA-Public Use
  Company Number: BR-PFIZER INC-2012317895

PATIENT
  Age: 67 Year
  Sex: Female

DRUGS (1)
  1. LIPITOR [Suspect]
     Indication: ANGIOPLASTY
     Dosage: 40 mg, one tablet daily
     Route: 048
     Dates: start: 20090313

REACTIONS (1)
  - Angiopathy [Unknown]
